FAERS Safety Report 13162584 (Version 1)
Quarter: 2017Q1

REPORT INFORMATION
  Report Type: Spontaneous
  Country: US (occurrence: US)
  Receive Date: 20170130
  Receipt Date: 20170130
  Transmission Date: 20170428
  Serious: Yes (Other)
  Sender: FDA-Public Use
  Company Number: US-DRREDDYS-USA/USA/16/0085821

PATIENT
  Sex: Female

DRUGS (1)
  1. RANITIDINE CAPSULES 150 MG [Suspect]
     Active Substance: RANITIDINE
     Indication: GASTROOESOPHAGEAL REFLUX DISEASE
     Route: 048

REACTIONS (17)
  - Nausea [Recovering/Resolving]
  - Lethargy [Recovering/Resolving]
  - Dyspnoea [Recovering/Resolving]
  - Product quality issue [Unknown]
  - Dizziness [Recovering/Resolving]
  - Drug ineffective [Unknown]
  - Nasopharyngitis [Recovering/Resolving]
  - Accident [Unknown]
  - Internal injury [Unknown]
  - Somnolence [Recovering/Resolving]
  - Hyperhidrosis [Recovering/Resolving]
  - Faeces discoloured [Recovering/Resolving]
  - Condition aggravated [Recovering/Resolving]
  - Abdominal pain upper [Unknown]
  - Respiratory disorder [Unknown]
  - Headache [Unknown]
  - Wheezing [Unknown]
